FAERS Safety Report 4565638-X (Version None)
Quarter: 2005Q1

REPORT INFORMATION
  Report Type: 
  Country: None (occurrence: None)
  Receive Date: 20050131
  Receipt Date: 20050125
  Transmission Date: 20050727
  Serious: Yes (Other)
  Sender: FDA-Public Use
  Company Number: US-JNJFOC-20050106163

PATIENT
  Age: 49 Year
  Sex: Female

DRUGS (5)
  1. DURAGESIC [Suspect]
     Route: 062
  2. DURAGESIC [Suspect]
     Route: 062
  3. LORTAB [Concomitant]
  4. LORTAB [Concomitant]
     Indication: PAIN
  5. ASPIRIN [Concomitant]
     Indication: HEADACHE
     Dosage: AS NEEDED

REACTIONS (7)
  - ACTIVITIES OF DAILY LIVING IMPAIRED [None]
  - ANXIETY [None]
  - DRUG INEFFECTIVE [None]
  - DRUG WITHDRAWAL SYNDROME [None]
  - HEADACHE [None]
  - INSOMNIA [None]
  - SUICIDAL IDEATION [None]
